FAERS Safety Report 23644864 (Version 6)
Quarter: 2024Q2

REPORT INFORMATION
  Report Type: Other
  Country: DE (occurrence: None)
  Receive Date: 20240318
  Receipt Date: 20240610
  Transmission Date: 20240716
  Serious: Yes (Other)
  Sender: FDA-Public Use
  Company Number: DE-ROCHE-3092225

PATIENT
  Age: 49 Year
  Sex: Male

DRUGS (16)
  1. OCREVUS [Suspect]
     Active Substance: OCRELIZUMAB
     Indication: Relapsing multiple sclerosis
     Route: 042
     Dates: start: 20180802, end: 20180816
  2. OCREVUS [Suspect]
     Active Substance: OCRELIZUMAB
     Route: 042
     Dates: start: 20190131
  3. OCREVUS [Suspect]
     Active Substance: OCRELIZUMAB
     Route: 042
     Dates: start: 20230601
  4. COMIRNATY [Concomitant]
     Route: 030
     Dates: start: 20210508, end: 20210508
  5. COMIRNATY [Concomitant]
     Route: 030
     Dates: start: 20211020, end: 20211020
  6. COMIRNATY [Concomitant]
     Route: 030
     Dates: start: 20220216, end: 20220216
  7. COMIRNATY [Concomitant]
     Route: 030
     Dates: start: 20210605, end: 20210605
  8. EVUSHELD [Concomitant]
     Active Substance: CILGAVIMAB\TIXAGEVIMAB
     Indication: COVID-19 prophylaxis
     Route: 030
     Dates: start: 20220315, end: 20220315
  9. LEVOTHYROXINE [Concomitant]
     Active Substance: LEVOTHYROXINE\LEVOTHYROXINE SODIUM
     Indication: Hypothyroidism
     Route: 048
     Dates: start: 201711
  10. CLINDAMYCIN [Concomitant]
     Active Substance: CLINDAMYCIN
     Indication: Coronavirus infection
     Route: 048
     Dates: start: 20230927, end: 20231015
  11. DICLOFENAC [Concomitant]
     Active Substance: DICLOFENAC
     Route: 048
     Dates: start: 20201125, end: 20201208
  12. PAXLOVID [Concomitant]
     Active Substance: NIRMATRELVIR\RITONAVIR
     Indication: Coronavirus infection
     Route: 048
     Dates: start: 20231012, end: 20231016
  13. ENGERIX-B [Concomitant]
     Active Substance: HEPATITIS B VIRUS SUBTYPE ADW2 HBSAG SURFACE PROTEIN ANTIGEN
     Indication: Hepatitis B immunisation
     Route: 030
     Dates: start: 20181119
  14. ZOPICLONE [Concomitant]
     Active Substance: ZOPICLONE
     Indication: Insomnia
     Dosage: DEFINITION OF THE INTERVAL: AS REQUIRED
     Route: 048
     Dates: start: 201504
  15. CEFUROXIME [Concomitant]
     Active Substance: CEFUROXIME
     Route: 048
     Dates: start: 20220308, end: 20220315
  16. AMOXICILLIN [Concomitant]
     Active Substance: AMOXICILLIN
     Route: 048
     Dates: start: 20230927, end: 20231031

REACTIONS (6)
  - Sudden hearing loss [Recovered/Resolved]
  - Pneumonitis [Recovered/Resolved]
  - Coronavirus infection [Recovered/Resolved]
  - Bacterial rhinitis [Recovered/Resolved]
  - Pulpitis dental [Recovered/Resolved]
  - Coronavirus infection [Unknown]

NARRATIVE: CASE EVENT DATE: 20220201
